FAERS Safety Report 16634909 (Version 1)
Quarter: 2019Q3

REPORT INFORMATION
  Report Type: Spontaneous
  Country: US (occurrence: US)
  Receive Date: 20190613
  Receipt Date: 20190613
  Transmission Date: 20191004
  Serious: Yes (Hospitalization)
  Sender: FDA-Public Use
  Company Number: None

PATIENT
  Age: 61 Year
  Sex: Female
  Weight: 87.54 kg

DRUGS (12)
  1. METOPROLOL. [Concomitant]
     Active Substance: METOPROLOL
  2. ZANTAC [Concomitant]
     Active Substance: RANITIDINE HYDROCHLORIDE
  3. LOVASTATIN. [Concomitant]
     Active Substance: LOVASTATIN
  4. CALCIUM [Concomitant]
     Active Substance: CALCIUM
  5. DULCOLAX NOS [Concomitant]
     Active Substance: BISACODYL OR DOCUSATE SODIUM
  6. L-LYSINE [Concomitant]
     Active Substance: LYSINE
  7. CYMBALTA [Concomitant]
     Active Substance: DULOXETINE HYDROCHLORIDE
  8. LETROZOLE. [Concomitant]
     Active Substance: LETROZOLE
  9. VITAMIN D3 [Concomitant]
     Active Substance: CHOLECALCIFEROL
  10. POTASSIUM [Concomitant]
     Active Substance: POTASSIUM
  11. BIOTIN [Concomitant]
     Active Substance: BIOTIN
  12. IBRANCE [Suspect]
     Active Substance: PALBOCICLIB
     Indication: NEOPLASM MALIGNANT
     Route: 048

REACTIONS (4)
  - Alopecia [None]
  - Small intestinal obstruction [None]
  - Stomatitis [None]
  - Hair texture abnormal [None]
